FAERS Safety Report 6553350-7 (Version None)
Quarter: 2010Q1

REPORT INFORMATION
  Report Type: 
  Country: None (occurrence: None)
  Receive Date: 20100127
  Receipt Date: 20090922
  Transmission Date: 20100710
  Serious: No
  Sender: FDA-Public Use
  Company Number: A0797581A

PATIENT
  Age: 59 Year
  Sex: Male

DRUGS (5)
  1. SUMATRIPTAN SUCCINATE [Suspect]
  2. GSK AUTOINJECTOR [Suspect]
     Indication: DRUG USE FOR UNKNOWN INDICATION
  3. NORTRIPTYLINE [Concomitant]
  4. VITAMIN [Concomitant]
  5. MINERAL SUPPLEMENT [Concomitant]

REACTIONS (2)
  - DEVICE MALFUNCTION [None]
  - PRODUCT QUALITY ISSUE [None]
